FAERS Safety Report 16639528 (Version 1)
Quarter: 2019Q3

REPORT INFORMATION
  Report Type: Report from Study
  Country: None (occurrence: US)
  Receive Date: 20190726
  Receipt Date: 20190726
  Transmission Date: 20191004
  Serious: Yes (Other)
  Sender: FDA-Public Use
  Company Number: US-ABBVIE-19K-163-2864712-00

PATIENT
  Sex: Female
  Weight: 60.84 kg

DRUGS (1)
  1. SYNTHROID [Suspect]
     Active Substance: LEVOTHYROXINE SODIUM
     Indication: HYPOTHYROIDISM
     Route: 048
     Dates: end: 201906

REACTIONS (4)
  - Post-traumatic stress disorder [Unknown]
  - Disability [Unknown]
  - Pain [Unknown]
  - Malaise [Unknown]
